FAERS Safety Report 18951999 (Version 2)
Quarter: 2025Q3

REPORT INFORMATION
  Report Type: Spontaneous
  Country: EU (occurrence: EU)
  Receive Date: 20210301
  Receipt Date: 20250717
  Transmission Date: 20251020
  Serious: Yes (Other)
  Sender: AUROBINDO
  Company Number: EU-EGIS-HUN-2021-0202

PATIENT
  Age: 62 Year
  Sex: Female

DRUGS (1)
  1. IBANDRONIC ACID [Suspect]
     Active Substance: IBANDRONIC ACID
     Indication: Osteoporosis postmenopausal
     Route: 065

REACTIONS (4)
  - Ulna fracture [Unknown]
  - Ankle fracture [Unknown]
  - Femur fracture [Recovered/Resolved]
  - Product use in unapproved indication [Unknown]
